FAERS Safety Report 20051691 (Version 2)
Quarter: 2021Q4

REPORT INFORMATION
  Report Type: Report from Study
  Country: CH (occurrence: CH)
  Receive Date: 20211110
  Receipt Date: 20211201
  Transmission Date: 20220304
  Serious: Yes (Death)
  Sender: FDA-Public Use
  Company Number: CH-ABBVIE-21K-151-4155327-00

PATIENT
  Age: 78 Year
  Sex: Male

DRUGS (2)
  1. CARBIDOPA\LEVODOPA [Suspect]
     Active Substance: CARBIDOPA\LEVODOPA
     Indication: Parkinson^s disease
     Dosage: 1 CASETTE A DAY, 20 MG/ML 5 MG/ML
     Route: 050
     Dates: start: 20180227
  2. CARBIDOPA\LEVODOPA [Suspect]
     Active Substance: CARBIDOPA\LEVODOPA
     Dosage: MD: 9.0 ML, CRD: 3.6 ML/H, CRN: 1.5 ML/H, ED: 1.5 ML, 24H THERAPY
     Route: 050
     Dates: start: 20201007, end: 20211106

REACTIONS (1)
  - Cardiac arrest [Fatal]

NARRATIVE: CASE EVENT DATE: 20211106
